FAERS Safety Report 17927800 (Version 1)
Quarter: 2020Q2

REPORT INFORMATION
  Report Type: Spontaneous
  Country: US (occurrence: US)
  Receive Date: 20200622
  Receipt Date: 20200622
  Transmission Date: 20200714
  Serious: Yes (Hospitalization)
  Sender: FDA-Public Use
  Company Number: None

PATIENT
  Age: 71 Year
  Sex: Male
  Weight: 77.56 kg

DRUGS (1)
  1. AMOXICILLIN/CLAVULANATE (AMOXICILLIN TRIHYDRATE 875MG/CLAVULANATE K 125MG TAB) [Suspect]
     Active Substance: AMOXICILLIN\CLAVULANATE POTASSIUM
     Indication: UPPER RESPIRATORY TRACT INFECTION
     Route: 048
     Dates: start: 20190626, end: 20190714

REACTIONS (8)
  - Pharyngitis [None]
  - Rash pruritic [None]
  - Thrombocytopenia [None]
  - Dermatitis exfoliative [None]
  - Oral pain [None]
  - Leukoplakia [None]
  - Pustule [None]
  - Anaemia [None]

NARRATIVE: CASE EVENT DATE: 20190713
